FAERS Safety Report 6595205-8 (Version None)
Quarter: 2010Q1

REPORT INFORMATION
  Report Type: 
  Country: None (occurrence: None)
  Receive Date: 20100212
  Receipt Date: 20100201
  Transmission Date: 20100710
  Serious: Yes (Hospitalization)
  Sender: FDA-Public Use
  Company Number: CIO10001340

PATIENT
  Sex: Female

DRUGS (2)
  1. CREST WHITENING PLUS SCOPE TOOTHPASTE, MINTY FRESH FLAVOR(SODIUM ACID [Suspect]
     Dosage: INTRAORAL
  2. MEDICATION FOR ACID REFLUX () [Suspect]
     Indication: GASTROOESOPHAGEAL REFLUX DISEASE
     Dosage: ORAL
     Route: 048

REACTIONS (2)
  - DIZZINESS [None]
  - LOSS OF CONSCIOUSNESS [None]
